FAERS Safety Report 8443127-X (Version None)
Quarter: 2012Q2

REPORT INFORMATION
  Report Type: 
  Country: None (occurrence: None)
  Receive Date: 20120615
  Receipt Date: 20120605
  Transmission Date: 20120825
  Serious: Yes (Hospitalization)
  Sender: FDA-Public Use
  Company Number: FR-MERCK-1206USA01194

PATIENT
  Age: 87 Year
  Sex: Female

DRUGS (10)
  1. ZOLPIDEM TARTRATE [Suspect]
     Indication: INSOMNIA
     Route: 048
     Dates: start: 20110101
  2. PANTOPRAZOLE [Concomitant]
     Route: 048
  3. COZAAR [Suspect]
     Indication: HYPERTENSION
     Route: 048
     Dates: start: 20110101
  4. ZOLOFT [Suspect]
     Indication: DEPRESSION
     Route: 048
     Dates: start: 20030101, end: 20120301
  5. ZOLPIDEM TARTRATE [Suspect]
     Route: 048
     Dates: start: 20120101
  6. ASPIRIN [Concomitant]
     Route: 048
  7. MIANSERIN HYDROCHLORIDE [Suspect]
     Indication: DEPRESSION
     Route: 048
     Dates: start: 20030101
  8. PRAZEPAM [Suspect]
     Indication: ANXIETY
     Route: 048
     Dates: start: 20110101
  9. FENOFIBRATE [Concomitant]
     Route: 048
  10. ZOLOFT [Suspect]
     Route: 048
     Dates: start: 20120301

REACTIONS (3)
  - COGNITIVE DISORDER [None]
  - FALL [None]
  - LOSS OF CONSCIOUSNESS [None]
